FAERS Safety Report 8916718 (Version 1)
Quarter: 2012Q4

REPORT INFORMATION
  Report Type: 
  Country: US (occurrence: US)
  Receive Date: 20121120
  Receipt Date: 20121120
  Transmission Date: 20130627
  Serious: Yes (Hospitalization, Other)
  Sender: FDA-Public Use
  Company Number: US-BAYER-2012-119031

PATIENT
  Age: 33 Year
  Sex: Female

DRUGS (4)
  1. OCELLA [Suspect]
     Dosage: 3-0.0-3mg
     Dates: start: 20100419, end: 20111130
  2. ZOFRAN [Concomitant]
     Indication: NAUSEA
     Dosage: 4 mg, q. 6 p.r.n.
  3. VICODIN [Concomitant]
     Indication: PAIN
     Dosage: 5/500 1 to 2 tablets p.o. q. 6 hours p.r.n
  4. PROTONIX [Concomitant]
     Dosage: 40 mg, QD 30 days.
     Route: 048

REACTIONS (3)
  - Mesenteric vein thrombosis [None]
  - Portal vein thrombosis [None]
  - Cholecystitis chronic [None]
